FAERS Safety Report 4824657-6 (Version None)
Quarter: 2005Q4

REPORT INFORMATION
  Report Type: 
  Country: None (occurrence: None)
  Receive Date: 20051110
  Receipt Date: 20051031
  Transmission Date: 20060501
  Serious: Yes (Life-Threatening, Hospitalization, Other)
  Sender: FDA-Public Use
  Company Number: JP-JNJFOC-20051004559

PATIENT
  Sex: Male
  Weight: 60 kg

DRUGS (26)
  1. REMICADE [Suspect]
     Route: 042
  2. REMICADE [Suspect]
     Route: 042
  3. REMICADE [Suspect]
     Route: 042
  4. REMICADE [Suspect]
     Route: 042
  5. REMICADE [Suspect]
     Route: 042
  6. REMICADE [Suspect]
     Route: 042
  7. REMICADE [Suspect]
     Route: 042
  8. REMICADE [Suspect]
     Route: 042
  9. REMICADE [Suspect]
     Route: 042
  10. REMICADE [Suspect]
     Route: 042
  11. REMICADE [Suspect]
     Route: 042
  12. REMICADE [Suspect]
     Indication: RHEUMATOID ARTHRITIS
     Route: 042
  13. RHEUMATREX [Suspect]
     Route: 048
  14. RHEUMATREX [Suspect]
     Route: 048
  15. RHEUMATREX [Suspect]
     Indication: RHEUMATOID ARTHRITIS
     Route: 048
  16. ISONIAZID [Concomitant]
     Indication: ANTIBIOTIC PROPHYLAXIS
     Route: 048
  17. PREDNISOLONE [Concomitant]
     Indication: RHEUMATOID ARTHRITIS
     Route: 048
  18. LIMETHASON [Concomitant]
     Indication: RHEUMATOID ARTHRITIS
     Route: 042
  19. MOBIC [Concomitant]
     Indication: RHEUMATOID ARTHRITIS
     Route: 048
  20. VOLTAREN [Concomitant]
     Indication: RHEUMATOID ARTHRITIS
  21. KETOPROFEN [Concomitant]
     Indication: RHEUMATOID ARTHRITIS
  22. SELBEX [Concomitant]
     Route: 048
  23. RENIVACE [Concomitant]
     Route: 048
  24. RENIVACE [Concomitant]
     Indication: HYPERTENSION
     Route: 048
  25. NORVASC [Concomitant]
     Indication: HYPERTENSION
     Route: 048
  26. ADRENAL HORMONE PREPARATIONS [Concomitant]
     Indication: RHEUMATOID ARTHRITIS
     Route: 048

REACTIONS (5)
  - BRONCHITIS ACUTE [None]
  - HYPERGLYCAEMIA [None]
  - LIP DISORDER [None]
  - LUNG NEOPLASM MALIGNANT [None]
  - SKIN ULCER [None]
